FAERS Safety Report 15716894 (Version 1)
Quarter: 2018Q4

REPORT INFORMATION
  Report Type: Spontaneous
  Country: US (occurrence: US)
  Receive Date: 20181213
  Receipt Date: 20181213
  Transmission Date: 20190205
  Serious: Yes (Other)
  Sender: FDA-Public Use
  Company Number: None

PATIENT
  Age: 53 Year
  Sex: Female
  Weight: 83.25 kg

DRUGS (2)
  1. OCEAN SALINE NASAL SPRAY [Suspect]
     Active Substance: SODIUM CHLORIDE
     Indication: MULTIPLE ALLERGIES
     Route: 055
     Dates: start: 20180727, end: 20180913
  2. OCEAN SALINE NASAL SPRAY [Suspect]
     Active Substance: SODIUM CHLORIDE
     Indication: SINUS CONGESTION
     Route: 055
     Dates: start: 20180727, end: 20180913

REACTIONS (3)
  - Sinusitis [None]
  - Eye infection [None]
  - Condition aggravated [None]

NARRATIVE: CASE EVENT DATE: 20180830
